FAERS Safety Report 5693802-5 (Version None)
Quarter: 2008Q2

REPORT INFORMATION
  Report Type: 
  Country: None (occurrence: None)
  Receive Date: 20080403
  Receipt Date: 19840604
  Transmission Date: 20081010
  Serious: Yes (Death, Other)
  Sender: FDA-Public Use
  Company Number: US-ROCHE-890

PATIENT
  Age: 65 Year
  Sex: Male

DRUGS (2)
  1. NAPROSYN [Suspect]
     Indication: DRUG USE FOR UNKNOWN INDICATION
     Route: 048
  2. AMINOGLYCOSIDE ANTIBIOTIC NOS [Concomitant]
     Route: 048

REACTIONS (2)
  - DEATH [None]
  - RENAL FAILURE [None]
